FAERS Safety Report 16109448 (Version 1)
Quarter: 2019Q1

REPORT INFORMATION
  Report Type: Spontaneous
  Country: ES (occurrence: ES)
  Receive Date: 20190324
  Receipt Date: 20190324
  Transmission Date: 20190418
  Serious: Yes (Other)
  Sender: FDA-Public Use
  Company Number: PHHY2019ES014864

PATIENT
  Age: 32 Year
  Sex: Male

DRUGS (2)
  1. IBUPROFEN. [Suspect]
     Active Substance: IBUPROFEN
     Indication: LIMB INJURY
     Route: 065
  2. IBUPROFEN. [Suspect]
     Active Substance: IBUPROFEN
     Indication: INJURY

REACTIONS (5)
  - Penile ulceration [Recovered/Resolved]
  - Fixed eruption [Recovered/Resolved]
  - Skin toxicity [Recovered/Resolved]
  - Toxic skin eruption [Recovered/Resolved]
  - Genital pain [Recovered/Resolved]
